FAERS Safety Report 6297609-X (Version None)
Quarter: 2009Q3

REPORT INFORMATION
  Report Type: 
  Country: None (occurrence: None)
  Receive Date: 20090805
  Receipt Date: 20090724
  Transmission Date: 20100115
  Serious: Yes (Hospitalization)
  Sender: FDA-Public Use
  Company Number: DE-PFIZER INC-2009245531

PATIENT
  Age: 79 Year

DRUGS (12)
  1. ORELOX [Suspect]
     Dosage: 400 MG-2
     Route: 048
     Dates: start: 20090309, end: 20090315
  2. AVELOX [Suspect]
     Indication: PNEUMONIA
     Dosage: UNK
     Route: 048
     Dates: start: 20090305, end: 20090307
  3. CEFTRIAXONE [Suspect]
     Indication: URINARY TRACT INFECTION
     Dosage: UNK
     Route: 042
     Dates: start: 20090307, end: 20090309
  4. PREDNISOLONE [Suspect]
     Dosage: 10 MG, 2X/DAY
     Route: 048
     Dates: start: 20090424, end: 20090429
  5. PREDNISOLONE [Suspect]
     Dosage: 10 MG, 1X/DAY
     Route: 048
     Dates: start: 20090430, end: 20090505
  6. ACETYLCYSTEINE [Concomitant]
     Indication: COUGH
     Dosage: 600 MG, 1X/DAY
     Route: 048
     Dates: start: 20090323
  7. ACTRAPID NOVOLET [Concomitant]
     Indication: TYPE 2 DIABETES MELLITUS
     Dosage: 10-6-6, 1 IN 3 D
     Route: 058
     Dates: start: 20000101
  8. DELIX [Concomitant]
     Indication: HYPERTENSION
     Dosage: 2.5 MG, 1X/DAY
     Route: 048
     Dates: start: 20000101
  9. DIGITOXIN TAB [Concomitant]
     Indication: ATRIAL FIBRILLATION
     Dosage: 0.07 MG, 1X/DAY
     Route: 048
     Dates: start: 20030101
  10. ISCOVER [Concomitant]
     Indication: CORONARY ARTERY DISEASE
     Dosage: 75 MG, 1X/DAY
     Route: 048
     Dates: start: 20050101
  11. SIMVASTATIN [Concomitant]
     Indication: HYPERLIPIDAEMIA
     Dosage: 20 MG, 1X/DAY
     Route: 048
     Dates: start: 20030101, end: 20090426
  12. TORASEMIDE [Concomitant]
     Indication: HYPERTENSION
     Dosage: UNK
     Route: 048
     Dates: start: 20000101

REACTIONS (1)
  - CLOSTRIDIUM DIFFICILE COLITIS [None]
